FAERS Safety Report 4530185-8 (Version None)
Quarter: 2004Q4

REPORT INFORMATION
  Report Type: 
  Country: None (occurrence: None)
  Receive Date: 20041215
  Receipt Date: 20041129
  Transmission Date: 20050328
  Serious: Yes (Hospitalization)
  Sender: FDA-Public Use
  Company Number: 2004BI000560

PATIENT
  Age: 37 Year
  Sex: Male

DRUGS (2)
  1. AMEVIVE [Suspect]
     Indication: PSORIASIS
     Dosage: 15 UG; QW; IM
     Route: 030
     Dates: start: 20040727, end: 20040810
  2. AMEVIVE [Suspect]
     Indication: PSORIASIS
     Dosage: 15 UG; QW; IM
     Route: 030
     Dates: start: 20040831

REACTIONS (2)
  - MYOSITIS [None]
  - VIRAL INFECTION [None]
